FAERS Safety Report 9933300 (Version 2)
Quarter: 2014Q1

REPORT INFORMATION
  Report Type: Spontaneous
  Country: US (occurrence: US)
  Receive Date: 20140228
  Receipt Date: 20140228
  Transmission Date: 20141002
  Serious: No
  Sender: FDA-Public Use
  Company Number: US-MYLANLABS-2013S1004016

PATIENT
  Age: 67 Year
  Sex: Male
  Weight: 90.72 kg

DRUGS (7)
  1. AMNESTEEM CAPSULES [Suspect]
     Indication: ACNE CYSTIC
     Route: 048
     Dates: start: 20130130, end: 2013
  2. AMNESTEEM CAPSULES [Suspect]
     Indication: ROSACEA
     Route: 048
     Dates: start: 20130130, end: 2013
  3. BLOOD PRESSURE MEDICATION [Concomitant]
     Indication: BLOOD PRESSURE INCREASED
  4. SYNTHROID [Concomitant]
     Indication: HYPOTHYROIDISM
  5. TOPIRAMATE [Concomitant]
  6. LOSARTAN [Concomitant]
     Indication: BLOOD PRESSURE INCREASED
  7. IMITREX [Concomitant]
     Indication: MIGRAINE

REACTIONS (1)
  - Pruritus [Recovered/Resolved]
